FAERS Safety Report 11389932 (Version 1)
Quarter: 2015Q3

REPORT INFORMATION
  Report Type: Spontaneous
  Country: US (occurrence: US)
  Receive Date: 20150818
  Receipt Date: 20150818
  Transmission Date: 20151125
  Serious: No
  Sender: FDA-Public Use
  Company Number: US-009507513-1504USA019778

PATIENT
  Age: 63 Year
  Sex: Male

DRUGS (2)
  1. NITAZOX [Concomitant]
     Dosage: UNK
  2. FIDAXOMICIN [Suspect]
     Active Substance: FIDAXOMICIN
     Indication: CLOSTRIDIUM DIFFICILE INFECTION
     Dosage: 200 MG, BID
     Route: 048

REACTIONS (2)
  - Treatment failure [Recovered/Resolved]
  - Clostridium difficile infection [Recovered/Resolved]
